FAERS Safety Report 5829731-3 (Version None)
Quarter: 2008Q3

REPORT INFORMATION
  Report Type: 
  Country: None (occurrence: None)
  Receive Date: 20080729
  Receipt Date: 20080718
  Transmission Date: 20090109
  Serious: Yes (Hospitalization)
  Sender: FDA-Public Use
  Company Number: 236789J08USA

PATIENT
  Age: 39 Year
  Sex: Female

DRUGS (2)
  1. REBIF [Suspect]
     Dosage: 44 MCG, 3 IN 1 WEEKS, SUBCUTANEOUS
     Route: 058
     Dates: start: 20080519
  2. AMANTADINE HCL [Suspect]
     Indication: MULTIPLE SCLEROSIS
     Dates: start: 20080101, end: 20080701

REACTIONS (2)
  - BLOOD PRESSURE DECREASED [None]
  - BRADYCARDIA [None]
